FAERS Safety Report 4336340-4 (Version None)
Quarter: 2004Q2

REPORT INFORMATION
  Report Type: 
  Country: None (occurrence: None)
  Receive Date: 20040407
  Receipt Date: 20040402
  Transmission Date: 20050107
  Serious: Yes (Other)
  Sender: FDA-Public Use
  Company Number: US-JNJFOC-20040204112

PATIENT
  Age: 13 Year
  Sex: Female
  Weight: 54.4316 kg

DRUGS (6)
  1. ORTHO EVRA [Suspect]
     Indication: MENSTRUATION IRREGULAR
     Dosage: 1 DOSE(S), 1 IN 1 WEEK, TRANSDERMAL
     Route: 062
     Dates: start: 20031210
  2. DEPAKOATE (VALPROATE SEMISODIUM) UNSPECIFIED [Concomitant]
  3. KEPPRA (LEVETIRACETAM) UNSPECIFIED [Concomitant]
  4. KLONOPIN (CLONAZEPAM) UNSPECIFIED [Concomitant]
  5. PRILOSEC (OMEPRAZOLE) UNSPECIFIED [Concomitant]
  6. CLONIDINE (CLONIDINE) UNSPECIFIED [Concomitant]

REACTIONS (2)
  - CONVULSION [None]
  - WEIGHT INCREASED [None]
